FAERS Safety Report 6742090-7 (Version None)
Quarter: 2010Q2

REPORT INFORMATION
  Report Type: 
  Country: None (occurrence: None)
  Receive Date: 20100526
  Receipt Date: 20100514
  Transmission Date: 20101027
  Serious: Yes (Hospitalization, Other)
  Sender: FDA-Public Use
  Company Number: PHHY2010AR31644

PATIENT
  Sex: Female

DRUGS (1)
  1. RASILEZ [Suspect]
     Indication: HYPERTENSION

REACTIONS (5)
  - CARDIOMEGALY [None]
  - DYSPNOEA [None]
  - PNEUMONIA [None]
  - PULMONARY OEDEMA [None]
  - RENAL DISORDER [None]
